FAERS Safety Report 6522195-6 (Version None)
Quarter: 2009Q4

REPORT INFORMATION
  Report Type: 
  Country: None (occurrence: None)
  Receive Date: 20091229
  Receipt Date: 20091229
  Transmission Date: 20100525
  Serious: Yes (Life-Threatening, Hospitalization)
  Sender: FDA-Public Use
  Company Number: None

PATIENT
  Age: 21 Year
  Sex: Male
  Weight: 73 kg

DRUGS (1)
  1. PHENYTOIN [Suspect]
     Indication: CONVULSION
     Dosage: 40 ML QD PO (X 14 DAYS)
     Route: 048
     Dates: start: 20090921, end: 20090927

REACTIONS (7)
  - ALANINE AMINOTRANSFERASE INCREASED [None]
  - ASPARTATE AMINOTRANSFERASE INCREASED [None]
  - CREATININE RENAL CLEARANCE DECREASED [None]
  - NEUROPATHY PERIPHERAL [None]
  - PARAESTHESIA [None]
  - THERAPEUTIC AGENT TOXICITY [None]
  - TREMOR [None]
